FAERS Safety Report 22650044 (Version 1)
Quarter: 2023Q2

REPORT INFORMATION
  Report Type: Spontaneous
  Country: US (occurrence: US)
  Receive Date: 20230628
  Receipt Date: 20230628
  Transmission Date: 20230721
  Serious: Yes (Hospitalization, Other)
  Sender: FDA-Public Use
  Company Number: US-ASTELLAS-2023US014376

PATIENT
  Age: 77 Year
  Sex: Male

DRUGS (155)
  1. PADCEV [Suspect]
     Active Substance: ENFORTUMAB VEDOTIN-EJFV
     Indication: Bladder cancer
     Dosage: 1.25 MG/KG, CYCLIC (110 MG ON DAYS 1,8,15 EVERY 28DAYS)
     Route: 042
     Dates: start: 20230424, end: 20230605
  2. PADCEV [Suspect]
     Active Substance: ENFORTUMAB VEDOTIN-EJFV
     Dosage: 1.25 MG/KG, CYCLIC (110MG ON DAYS 1,8,15 EVERY 28DAYS)
     Route: 042
     Dates: start: 20230619
  3. HEPARIN LOCK FLUSH [Concomitant]
     Active Substance: HEPARIN SODIUM
     Indication: Product used for unknown indication
     Dosage: 5 ML, ONCE
     Route: 042
     Dates: start: 20220822
  4. HEPARIN LOCK FLUSH [Concomitant]
     Active Substance: HEPARIN SODIUM
     Dosage: 5 ML, ONCE
     Route: 042
     Dates: start: 20220901
  5. HEPARIN LOCK FLUSH [Concomitant]
     Active Substance: HEPARIN SODIUM
     Dosage: 5 ML, ONCE
     Route: 042
     Dates: start: 20220908
  6. HEPARIN LOCK FLUSH [Concomitant]
     Active Substance: HEPARIN SODIUM
     Dosage: 5 ML, ONCE
     Route: 042
     Dates: start: 20220915
  7. HEPARIN LOCK FLUSH [Concomitant]
     Active Substance: HEPARIN SODIUM
     Dosage: 5 ML, ONCE
     Route: 042
     Dates: start: 20220921
  8. HEPARIN LOCK FLUSH [Concomitant]
     Active Substance: HEPARIN SODIUM
     Dosage: 5 ML, ONCE
     Route: 042
     Dates: start: 20220928
  9. HEPARIN LOCK FLUSH [Concomitant]
     Active Substance: HEPARIN SODIUM
     Dosage: 5 ML, ONCE
     Route: 042
     Dates: start: 20221005
  10. HEPARIN LOCK FLUSH [Concomitant]
     Active Substance: HEPARIN SODIUM
     Dosage: 5 ML, ONCE
     Route: 042
     Dates: start: 20221012
  11. HEPARIN LOCK FLUSH [Concomitant]
     Active Substance: HEPARIN SODIUM
     Dosage: 5 ML, ONCE
     Route: 042
     Dates: start: 20221019
  12. HEPARIN LOCK FLUSH [Concomitant]
     Active Substance: HEPARIN SODIUM
     Dosage: 5 ML, ONCE
     Route: 042
     Dates: start: 20221025
  13. HEPARIN LOCK FLUSH [Concomitant]
     Active Substance: HEPARIN SODIUM
     Dosage: 5 ML, ONCE
     Route: 042
     Dates: start: 20221102
  14. HEPARIN LOCK FLUSH [Concomitant]
     Active Substance: HEPARIN SODIUM
     Dosage: 5 ML, ONCE
     Route: 042
     Dates: start: 20221111
  15. HEPARIN LOCK FLUSH [Concomitant]
     Active Substance: HEPARIN SODIUM
     Dosage: 5 ML, ONCE
     Route: 042
     Dates: start: 20221115
  16. HEPARIN LOCK FLUSH [Concomitant]
     Active Substance: HEPARIN SODIUM
     Dosage: 5 ML, ONCE
     Route: 042
     Dates: start: 20221122
  17. HEPARIN LOCK FLUSH [Concomitant]
     Active Substance: HEPARIN SODIUM
     Dosage: 5 ML, ONCE
     Route: 042
     Dates: start: 20221130
  18. HEPARIN LOCK FLUSH [Concomitant]
     Active Substance: HEPARIN SODIUM
     Dosage: 5 ML, ONCE
     Route: 042
     Dates: start: 20221206
  19. HEPARIN LOCK FLUSH [Concomitant]
     Active Substance: HEPARIN SODIUM
     Dosage: 5 ML, ONCE
     Route: 042
     Dates: start: 20221213
  20. HEPARIN LOCK FLUSH [Concomitant]
     Active Substance: HEPARIN SODIUM
     Dosage: 5 ML, ONCE
     Route: 042
     Dates: start: 20221221
  21. HEPARIN LOCK FLUSH [Concomitant]
     Active Substance: HEPARIN SODIUM
     Dosage: 5 ML, ONCE
     Route: 042
     Dates: start: 20221230
  22. HEPARIN LOCK FLUSH [Concomitant]
     Active Substance: HEPARIN SODIUM
     Dosage: 5 ML, ONCE
     Route: 042
     Dates: start: 20230501
  23. HEPARIN LOCK FLUSH [Concomitant]
     Active Substance: HEPARIN SODIUM
     Dosage: 5 ML, ONCE
     Route: 042
     Dates: start: 20230113
  24. HEPARIN LOCK FLUSH [Concomitant]
     Active Substance: HEPARIN SODIUM
     Dosage: 5 ML, ONCE
     Route: 042
     Dates: start: 20230127
  25. HEPARIN LOCK FLUSH [Concomitant]
     Active Substance: HEPARIN SODIUM
     Dosage: 5 ML, ONCE
     Route: 042
     Dates: start: 20230203
  26. HEPARIN LOCK FLUSH [Concomitant]
     Active Substance: HEPARIN SODIUM
     Dosage: 5 ML, ONCE
     Route: 042
     Dates: start: 20230210
  27. HEPARIN LOCK FLUSH [Concomitant]
     Active Substance: HEPARIN SODIUM
     Dosage: 5 ML, ONCE
     Route: 042
     Dates: start: 20230217
  28. HEPARIN LOCK FLUSH [Concomitant]
     Active Substance: HEPARIN SODIUM
     Dosage: 5 ML, ONCE
     Route: 042
     Dates: start: 20230224
  29. HEPARIN LOCK FLUSH [Concomitant]
     Active Substance: HEPARIN SODIUM
     Dosage: 5 ML, ONCE
     Route: 042
     Dates: start: 20230406
  30. HEPARIN LOCK FLUSH [Concomitant]
     Active Substance: HEPARIN SODIUM
     Dosage: 5 ML, ONCE
     Route: 042
     Dates: start: 20230407
  31. HEPARIN LOCK FLUSH [Concomitant]
     Active Substance: HEPARIN SODIUM
     Dosage: 5 ML, ONCE
     Route: 042
     Dates: start: 20230424
  32. HEPARIN LOCK FLUSH [Concomitant]
     Active Substance: HEPARIN SODIUM
     Dosage: 5 ML, ONCE
     Route: 042
     Dates: start: 20230501
  33. HEPARIN LOCK FLUSH [Concomitant]
     Active Substance: HEPARIN SODIUM
     Dosage: 5 ML, ONCE
     Route: 042
     Dates: start: 20230508
  34. HEPARIN LOCK FLUSH [Concomitant]
     Active Substance: HEPARIN SODIUM
     Dosage: 5 ML, ONCE
     Route: 042
     Dates: start: 20230522
  35. HEPARIN LOCK FLUSH [Concomitant]
     Active Substance: HEPARIN SODIUM
     Dosage: 5 ML, ONCE
     Route: 042
     Dates: start: 20230531
  36. HEPARIN LOCK FLUSH [Concomitant]
     Active Substance: HEPARIN SODIUM
     Dosage: 5 ML, ONCE
     Route: 042
     Dates: start: 20230605
  37. HEPARIN LOCK FLUSH [Concomitant]
     Active Substance: HEPARIN SODIUM
     Dosage: 5 ML, ONCE
     Route: 042
     Dates: start: 20230619
  38. DIPHENHYDRAMINE HYDROCHLORIDE [Concomitant]
     Active Substance: DIPHENHYDRAMINE HYDROCHLORIDE
     Indication: Product used for unknown indication
     Dosage: 25 MG, OTHER ONCE
     Route: 048
     Dates: start: 20221012
  39. DIPHENHYDRAMINE HYDROCHLORIDE [Concomitant]
     Active Substance: DIPHENHYDRAMINE HYDROCHLORIDE
     Dosage: 25 MG, OTHER ONCE
     Route: 048
     Dates: start: 20221102
  40. DIPHENHYDRAMINE HYDROCHLORIDE [Concomitant]
     Active Substance: DIPHENHYDRAMINE HYDROCHLORIDE
     Dosage: 25 MG, OTHER ONCE
     Route: 048
     Dates: start: 20221115
  41. DIPHENHYDRAMINE HYDROCHLORIDE [Concomitant]
     Active Substance: DIPHENHYDRAMINE HYDROCHLORIDE
     Dosage: 25 MG, OTHER ONCE
     Route: 048
     Dates: start: 20221130
  42. CALCIUM CARBONATE\CHOLECALCIFEROL [Concomitant]
     Active Substance: CALCIUM CARBONATE\CHOLECALCIFEROL
     Indication: Product used for unknown indication
     Dosage: 1 DF, THRICE DAILY (600MG-20MCG(800UNIT))
     Route: 048
     Dates: start: 20220901
  43. DENOSUMAB [Concomitant]
     Active Substance: DENOSUMAB
     Indication: Product used for unknown indication
     Dosage: 120 MG, OTHER ONCE
     Route: 058
     Dates: start: 20220901
  44. DENOSUMAB [Concomitant]
     Active Substance: DENOSUMAB
     Dosage: 120 MG, OTHER ONCE
     Route: 058
     Dates: start: 20221130
  45. DENOSUMAB [Concomitant]
     Active Substance: DENOSUMAB
     Dosage: 120 MG, OTHER ONCE
     Route: 058
     Dates: start: 20230224
  46. DENOSUMAB [Concomitant]
     Active Substance: DENOSUMAB
     Dosage: 120 MG, OTHER ONCE
     Route: 058
     Dates: start: 20230531
  47. CARBOPLATIN [Concomitant]
     Active Substance: CARBOPLATIN
     Indication: Product used for unknown indication
     Dosage: 293 MG, OTHER ONCE
     Route: 042
     Dates: start: 20220908
  48. CARBOPLATIN [Concomitant]
     Active Substance: CARBOPLATIN
     Dosage: 271 MG, OTHER ONCE
     Route: 042
     Dates: start: 20221005
  49. CARBOPLATIN [Concomitant]
     Active Substance: CARBOPLATIN
     Dosage: 286 MG, OTHER ONCE
     Route: 042
     Dates: start: 20221025
  50. CARBOPLATIN [Concomitant]
     Active Substance: CARBOPLATIN
     Dosage: 287 MG, OTHER ONCE
     Route: 042
     Dates: start: 20221115
  51. CARBOPLATIN [Concomitant]
     Active Substance: CARBOPLATIN
     Dosage: 319 MG, OTHER ONCE
     Route: 042
     Dates: start: 20221206
  52. GEMZAR [Concomitant]
     Active Substance: GEMCITABINE HYDROCHLORIDE
     Indication: Product used for unknown indication
     Dosage: 2060 MG, OTHER ONCE
     Route: 042
     Dates: start: 20220908
  53. GEMZAR [Concomitant]
     Active Substance: GEMCITABINE HYDROCHLORIDE
     Dosage: 2060 MG, OTHER ONCE
     Route: 042
     Dates: start: 20220921
  54. GEMZAR [Concomitant]
     Active Substance: GEMCITABINE HYDROCHLORIDE
     Dosage: 2070 MG, OTHER ONCE
     Route: 042
     Dates: start: 20221005
  55. GEMZAR [Concomitant]
     Active Substance: GEMCITABINE HYDROCHLORIDE
     Dosage: 2100 MG, OTHER ONCE
     Route: 042
     Dates: start: 20221012
  56. GEMZAR [Concomitant]
     Active Substance: GEMCITABINE HYDROCHLORIDE
     Dosage: 2100 MG, OTHER ONCE
     Route: 042
     Dates: start: 20221025
  57. GEMZAR [Concomitant]
     Active Substance: GEMCITABINE HYDROCHLORIDE
     Dosage: 2100 MG, OTHER ONCE
     Route: 042
     Dates: start: 20221102
  58. GEMZAR [Concomitant]
     Active Substance: GEMCITABINE HYDROCHLORIDE
     Dosage: 2110 MG, OTHER ONCE
     Route: 042
     Dates: start: 20221115
  59. GEMZAR [Concomitant]
     Active Substance: GEMCITABINE HYDROCHLORIDE
     Dosage: 2140 MG, OTHER ONCE
     Route: 042
     Dates: start: 20221122
  60. GEMZAR [Concomitant]
     Active Substance: GEMCITABINE HYDROCHLORIDE
     Dosage: 2140 MG, OTHER ONCE
     Route: 042
     Dates: start: 20221206
  61. GEMZAR [Concomitant]
     Active Substance: GEMCITABINE HYDROCHLORIDE
     Dosage: 2140 MG, OTHER ONCE
     Route: 042
     Dates: start: 20221221
  62. SODIUM CHLORIDE [Concomitant]
     Active Substance: SODIUM CHLORIDE
     Indication: Product used for unknown indication
     Dosage: 250 ML, OTHER ONCE
     Route: 042
     Dates: start: 20220908
  63. SODIUM CHLORIDE [Concomitant]
     Active Substance: SODIUM CHLORIDE
     Dosage: 250 ML, OTHER ONCE
     Route: 042
     Dates: start: 20220921
  64. SODIUM CHLORIDE [Concomitant]
     Active Substance: SODIUM CHLORIDE
     Dosage: 250 ML, OTHER ONCE
     Route: 042
     Dates: start: 20221005
  65. SODIUM CHLORIDE [Concomitant]
     Active Substance: SODIUM CHLORIDE
     Dosage: 250 ML, OTHER ONCE
     Route: 042
     Dates: start: 20221012
  66. SODIUM CHLORIDE [Concomitant]
     Active Substance: SODIUM CHLORIDE
     Dosage: 250 ML, OTHER ONCE
     Route: 042
     Dates: start: 20221025
  67. SODIUM CHLORIDE [Concomitant]
     Active Substance: SODIUM CHLORIDE
     Dosage: 250 ML, OTHER ONCE
     Route: 042
     Dates: start: 20221102
  68. SODIUM CHLORIDE [Concomitant]
     Active Substance: SODIUM CHLORIDE
     Dosage: 250 ML, OTHER ONCE
     Route: 042
     Dates: start: 20221115
  69. SODIUM CHLORIDE [Concomitant]
     Active Substance: SODIUM CHLORIDE
     Dosage: 250 ML, OTHER ONCE
     Route: 042
     Dates: start: 20221122
  70. SODIUM CHLORIDE [Concomitant]
     Active Substance: SODIUM CHLORIDE
     Dosage: 250 ML, OTHER ONCE
     Route: 042
     Dates: start: 20221130
  71. SODIUM CHLORIDE [Concomitant]
     Active Substance: SODIUM CHLORIDE
     Dosage: 250 ML, OTHER ONCE
     Route: 042
     Dates: start: 20221206
  72. SODIUM CHLORIDE [Concomitant]
     Active Substance: SODIUM CHLORIDE
     Dosage: 250 ML, OTHER ONCE
     Route: 042
     Dates: start: 20221221
  73. SODIUM CHLORIDE [Concomitant]
     Active Substance: SODIUM CHLORIDE
     Dosage: 250 ML, OTHER ONCE
     Route: 042
     Dates: start: 20230113
  74. SODIUM CHLORIDE [Concomitant]
     Active Substance: SODIUM CHLORIDE
     Dosage: 250 ML, OTHER ONCE
     Route: 042
     Dates: start: 20230224
  75. SODIUM CHLORIDE [Concomitant]
     Active Substance: SODIUM CHLORIDE
     Dosage: 250 ML, OTHER ONCE
     Route: 042
     Dates: start: 20230407
  76. SODIUM CHLORIDE [Concomitant]
     Active Substance: SODIUM CHLORIDE
     Dosage: 250 ML, OTHER ONCE
     Route: 042
     Dates: start: 20230424
  77. SODIUM CHLORIDE [Concomitant]
     Active Substance: SODIUM CHLORIDE
     Dosage: 250 ML, OTHER ONCE
     Route: 042
     Dates: start: 20230501
  78. SODIUM CHLORIDE [Concomitant]
     Active Substance: SODIUM CHLORIDE
     Dosage: 250 ML, OTHER ONCE
     Route: 042
     Dates: start: 20230522
  79. SODIUM CHLORIDE [Concomitant]
     Active Substance: SODIUM CHLORIDE
     Dosage: 250 ML, OTHER ONCE
     Route: 042
     Dates: start: 20230605
  80. SODIUM CHLORIDE [Concomitant]
     Active Substance: SODIUM CHLORIDE
     Dosage: 250 ML, OTHER ONCE
     Route: 042
     Dates: start: 20230619
  81. ONDANSETRON HYDROCHLORIDE [Concomitant]
     Active Substance: ONDANSETRON HYDROCHLORIDE
     Indication: Product used for unknown indication
     Dosage: 8 MG, OTHER ONCE
     Route: 042
     Dates: start: 20220908
  82. ONDANSETRON HYDROCHLORIDE [Concomitant]
     Active Substance: ONDANSETRON HYDROCHLORIDE
     Dosage: 8 MG, OTHER ONCE
     Route: 042
     Dates: start: 20220921
  83. ONDANSETRON HYDROCHLORIDE [Concomitant]
     Active Substance: ONDANSETRON HYDROCHLORIDE
     Dosage: 8 MG, OTHER ONCE
     Route: 042
     Dates: start: 20221005
  84. ONDANSETRON HYDROCHLORIDE [Concomitant]
     Active Substance: ONDANSETRON HYDROCHLORIDE
     Dosage: 8 MG, OTHER ONCE
     Route: 042
     Dates: start: 20221012
  85. ONDANSETRON HYDROCHLORIDE [Concomitant]
     Active Substance: ONDANSETRON HYDROCHLORIDE
     Dosage: 8 MG, OTHER ONCE
     Route: 042
     Dates: start: 20221025
  86. ONDANSETRON HYDROCHLORIDE [Concomitant]
     Active Substance: ONDANSETRON HYDROCHLORIDE
     Dosage: 8 MG, OTHER ONCE
     Route: 042
     Dates: start: 20221102
  87. ONDANSETRON HYDROCHLORIDE [Concomitant]
     Active Substance: ONDANSETRON HYDROCHLORIDE
     Dosage: 8 MG, OTHER ONCE
     Route: 042
     Dates: start: 20221115
  88. ONDANSETRON HYDROCHLORIDE [Concomitant]
     Active Substance: ONDANSETRON HYDROCHLORIDE
     Dosage: 8 MG, OTHER ONCE
     Route: 042
     Dates: start: 20221122
  89. ONDANSETRON HYDROCHLORIDE [Concomitant]
     Active Substance: ONDANSETRON HYDROCHLORIDE
     Dosage: 8 MG, OTHER ONCE
     Route: 042
     Dates: start: 20221206
  90. ONDANSETRON HYDROCHLORIDE [Concomitant]
     Active Substance: ONDANSETRON HYDROCHLORIDE
     Dosage: 8 MG, OTHER ONCE
     Route: 042
     Dates: start: 20221221
  91. ONDANSETRON HYDROCHLORIDE [Concomitant]
     Active Substance: ONDANSETRON HYDROCHLORIDE
     Dosage: 8 MG, OTHER ONCE
     Route: 042
     Dates: start: 20230424
  92. ONDANSETRON HYDROCHLORIDE [Concomitant]
     Active Substance: ONDANSETRON HYDROCHLORIDE
     Dosage: 8 MG, OTHER ONCE
     Route: 042
     Dates: start: 20230501
  93. ONDANSETRON HYDROCHLORIDE [Concomitant]
     Active Substance: ONDANSETRON HYDROCHLORIDE
     Dosage: 8 MG, OTHER ONCE
     Route: 042
     Dates: start: 20230605
  94. ONDANSETRON HYDROCHLORIDE [Concomitant]
     Active Substance: ONDANSETRON HYDROCHLORIDE
     Dosage: 8 MG, OTHER ONCE
     Route: 042
     Dates: start: 20230619
  95. DECADRON [Concomitant]
     Active Substance: DEXAMETHASONE
     Indication: Product used for unknown indication
     Dosage: 10 MG, OTHER ONCE
     Route: 042
     Dates: start: 20220908
  96. DECADRON [Concomitant]
     Active Substance: DEXAMETHASONE
     Dosage: 10 MG, OTHER ONCE
     Route: 042
     Dates: start: 20220921
  97. DECADRON [Concomitant]
     Active Substance: DEXAMETHASONE
     Dosage: 10 MG, OTHER ONCE
     Route: 042
     Dates: start: 20221005
  98. DECADRON [Concomitant]
     Active Substance: DEXAMETHASONE
     Dosage: 10 MG, OTHER ONCE
     Route: 042
     Dates: start: 20221012
  99. DECADRON [Concomitant]
     Active Substance: DEXAMETHASONE
     Dosage: 10 MG, OTHER ONCE
     Route: 042
     Dates: start: 20221025
  100. DECADRON [Concomitant]
     Active Substance: DEXAMETHASONE
     Dosage: 10 MG, OTHER ONCE
     Route: 042
     Dates: start: 20221102
  101. DECADRON [Concomitant]
     Active Substance: DEXAMETHASONE
     Dosage: 10 MG, OTHER ONCE
     Route: 042
     Dates: start: 20221115
  102. DECADRON [Concomitant]
     Active Substance: DEXAMETHASONE
     Dosage: 10 MG, OTHER ONCE
     Route: 042
     Dates: start: 20221122
  103. DECADRON [Concomitant]
     Active Substance: DEXAMETHASONE
     Dosage: 10 MG, OTHER ONCE
     Route: 042
     Dates: start: 20221206
  104. DECADRON [Concomitant]
     Active Substance: DEXAMETHASONE
     Dosage: 10 MG, OTHER ONCE
     Route: 042
     Dates: start: 20221221
  105. DECADRON [Concomitant]
     Active Substance: DEXAMETHASONE
     Dosage: 10 MG, OTHER ONCE
     Route: 042
     Dates: start: 20230424
  106. DECADRON [Concomitant]
     Active Substance: DEXAMETHASONE
     Dosage: 10 MG, OTHER ONCE
     Route: 042
     Dates: start: 20230501
  107. DECADRON [Concomitant]
     Active Substance: DEXAMETHASONE
     Dosage: 10 MG, OTHER ONCE
     Route: 042
     Dates: start: 20230522
  108. DECADRON [Concomitant]
     Active Substance: DEXAMETHASONE
     Dosage: 10 MG, OTHER ONCE
     Route: 042
     Dates: start: 20230605
  109. DECADRON [Concomitant]
     Active Substance: DEXAMETHASONE
     Dosage: 10 MG, OTHER ONCE
     Route: 042
     Dates: start: 20230619
  110. CLONAZEPAM [Concomitant]
     Active Substance: CLONAZEPAM
     Indication: Product used for unknown indication
     Dosage: 1 MG, OTHER 2 TO 3 TIMES A DAY
     Route: 048
     Dates: start: 20220919
  111. NYVEPRIA [Concomitant]
     Active Substance: PEGFILGRASTIM-APGF
     Indication: Product used for unknown indication
     Dosage: 6 MG, OTHER ONCE
     Route: 058
     Dates: start: 20220922
  112. NYVEPRIA [Concomitant]
     Active Substance: PEGFILGRASTIM-APGF
     Dosage: 6 MG, OTHER ONCE
     Route: 058
     Dates: start: 20221013
  113. NYVEPRIA [Concomitant]
     Active Substance: PEGFILGRASTIM-APGF
     Dosage: 6 MG, OTHER ONCE
     Route: 058
     Dates: start: 20221103
  114. NYVEPRIA [Concomitant]
     Active Substance: PEGFILGRASTIM-APGF
     Dosage: 6 MG, OTHER ONCE
     Route: 058
     Dates: start: 20221123
  115. NYVEPRIA [Concomitant]
     Active Substance: PEGFILGRASTIM-APGF
     Dosage: 6 MG, OTHER ONCE
     Route: 058
     Dates: start: 20221222
  116. ACETAMINOPHEN [Concomitant]
     Active Substance: ACETAMINOPHEN
     Indication: Product used for unknown indication
     Dosage: 650 MG, OTHER ONCE
     Route: 048
     Dates: start: 20221012
  117. ACETAMINOPHEN [Concomitant]
     Active Substance: ACETAMINOPHEN
     Dosage: 650 MG, OTHER ONCE
     Route: 048
     Dates: start: 20221102
  118. ACETAMINOPHEN [Concomitant]
     Active Substance: ACETAMINOPHEN
     Dosage: 650 MG, OTHER ONCE
     Route: 048
     Dates: start: 20221115
  119. ACETAMINOPHEN [Concomitant]
     Active Substance: ACETAMINOPHEN
     Dosage: 650 MG, OTHER ONCE
     Route: 048
     Dates: start: 20221130
  120. CALCIUM GLUCONATE [Concomitant]
     Active Substance: CALCIUM GLUCONATE
     Indication: Product used for unknown indication
     Dosage: 100 MG/ML, OTHER ONCE
     Route: 042
     Dates: start: 20221025
  121. DARBEPOETIN ALFA [Concomitant]
     Active Substance: DARBEPOETIN ALFA
     Indication: Product used for unknown indication
     Dosage: 500 ?G, OTHER ONCE
     Route: 058
  122. DARBEPOETIN ALFA [Concomitant]
     Active Substance: DARBEPOETIN ALFA
     Dosage: 500 ?G, OTHER ONCE
     Route: 058
     Dates: start: 20221213
  123. DARBEPOETIN ALFA [Concomitant]
     Active Substance: DARBEPOETIN ALFA
     Dosage: 500 ?G, OTHER ONCE
     Route: 058
     Dates: start: 20230531
  124. TUMS [Concomitant]
     Active Substance: CALCIUM CARBONATE
     Indication: Product used for unknown indication
     Dosage: 1 DF, OTHER ONCE
     Route: 048
     Dates: start: 20221206
  125. ELIGARD [Concomitant]
     Active Substance: LEUPROLIDE ACETATE
     Indication: Product used for unknown indication
     Dosage: 22.5 MG, OTHER ONCE
     Route: 058
     Dates: start: 20230113
  126. ELIGARD [Concomitant]
     Active Substance: LEUPROLIDE ACETATE
     Dosage: 22.5 MG, OTHER ONCE
     Route: 058
     Dates: start: 20230407
  127. PEMBROLIZUMAB [Concomitant]
     Active Substance: PEMBROLIZUMAB
     Indication: Product used for unknown indication
     Dosage: 400 MG, OTHER ONCE
     Route: 042
     Dates: start: 20230113
  128. PEMBROLIZUMAB [Concomitant]
     Active Substance: PEMBROLIZUMAB
     Dosage: 400 MG, OTHER ONCE
     Route: 042
     Dates: start: 20230224
  129. PEMBROLIZUMAB [Concomitant]
     Active Substance: PEMBROLIZUMAB
     Dosage: 400 MG, OTHER ONCE
     Route: 042
     Dates: start: 20230407
  130. ALBUTEROL SULFATE [Concomitant]
     Active Substance: ALBUTEROL SULFATE
     Indication: Product used for unknown indication
     Dosage: 2 PUFFS, 4 TIMES DAILY
     Route: 050
     Dates: start: 20230127
  131. SODIUM CHLORIDE [Concomitant]
     Active Substance: SODIUM CHLORIDE
     Indication: Product used for unknown indication
     Dosage: 1 LT ONCE
     Route: 042
     Dates: start: 20230224
  132. SODIUM CHLORIDE [Concomitant]
     Active Substance: SODIUM CHLORIDE
     Dosage: 1 LT ONCE
     Route: 042
     Dates: start: 20230407
  133. SODIUM CHLORIDE [Concomitant]
     Active Substance: SODIUM CHLORIDE
     Dosage: 1 LT ONCE
     Route: 042
     Dates: start: 20230508
  134. SODIUM CHLORIDE [Concomitant]
     Active Substance: SODIUM CHLORIDE
     Dosage: 1 LT ONCE
     Route: 042
     Dates: start: 20230522
  135. SODIUM CHLORIDE [Concomitant]
     Active Substance: SODIUM CHLORIDE
     Dosage: 1 LT ONCE
     Route: 042
     Dates: start: 20230531
  136. SODIUM CHLORIDE [Concomitant]
     Active Substance: SODIUM CHLORIDE
     Dosage: 1 LT ONCE
     Route: 042
     Dates: start: 20230605
  137. SODIUM CHLORIDE [Concomitant]
     Active Substance: SODIUM CHLORIDE
     Dosage: 1 LT ONCE
     Route: 042
     Dates: start: 20230612
  138. DEXAMETHASONE [Concomitant]
     Active Substance: DEXAMETHASONE
     Indication: Product used for unknown indication
     Route: 048
     Dates: start: 20230414
  139. MEMANTINE [Concomitant]
     Active Substance: MEMANTINE
     Indication: Product used for unknown indication
     Dosage: 10 MG AS DIRECTED, UNKNOWN FREQ.
     Route: 048
  140. PROTONIX [Concomitant]
     Active Substance: PANTOPRAZOLE SODIUM
     Indication: Product used for unknown indication
     Route: 048
     Dates: start: 20230419
  141. DRONABINOL [Concomitant]
     Active Substance: DRONABINOL
     Indication: Product used for unknown indication
     Dosage: 1 DF, OTHER AS DIRECTED
     Route: 048
     Dates: start: 20230519
  142. MAGNESIUM SULFATE [Concomitant]
     Active Substance: MAGNESIUM SULFATE
     Indication: Product used for unknown indication
     Dosage: 2 G, OTHER ONCE
     Route: 042
     Dates: start: 20230522
  143. MAGNESIUM SULFATE [Concomitant]
     Active Substance: MAGNESIUM SULFATE
     Dosage: 2 G, OTHER ONCE
     Route: 042
     Dates: start: 20230612
  144. ONDANSETRON [Concomitant]
     Active Substance: ONDANSETRON
     Indication: Product used for unknown indication
     Dosage: 1 DF, AS NEEDED OR 3 TIMES A DAY
     Route: 048
  145. PREDNISONE [Concomitant]
     Active Substance: PREDNISONE
     Indication: Product used for unknown indication
     Dosage: 20 MG, OTHER AS DIRECTED
     Route: 048
  146. CEFDINIR [Concomitant]
     Active Substance: CEFDINIR
     Indication: Product used for unknown indication
     Route: 048
  147. AZITHROMYCIN [Concomitant]
     Active Substance: AZITHROMYCIN
     Indication: Product used for unknown indication
     Dosage: 500 MG, OTHER AS DIRECTED
     Route: 048
  148. ASPIRIN [Concomitant]
     Active Substance: ASPIRIN
     Indication: Product used for unknown indication
     Route: 048
  149. AMLODIPINE [Concomitant]
     Active Substance: AMLODIPINE BESYLATE
     Indication: Product used for unknown indication
     Route: 048
  150. FLOMAX [Concomitant]
     Active Substance: TAMSULOSIN HYDROCHLORIDE
     Indication: Product used for unknown indication
     Route: 048
  151. TRAZODONE [Concomitant]
     Active Substance: TRAZODONE HYDROCHLORIDE
     Indication: Product used for unknown indication
     Route: 048
  152. LOSARTAN [Concomitant]
     Active Substance: LOSARTAN
     Indication: Product used for unknown indication
     Route: 048
  153. FLUOXETINE [Concomitant]
     Active Substance: FLUOXETINE HYDROCHLORIDE
     Indication: Product used for unknown indication
     Route: 048
  154. BENAZEPRIL [Concomitant]
     Active Substance: BENAZEPRIL HYDROCHLORIDE
     Indication: Product used for unknown indication
     Route: 048
  155. ALLOPURINOL [Concomitant]
     Active Substance: ALLOPURINOL
     Indication: Product used for unknown indication
     Route: 048

REACTIONS (4)
  - Malignant neoplasm progression [Unknown]
  - General physical health deterioration [Recovered/Resolved]
  - Atypical pneumonia [Unknown]
  - Asthenia [Not Recovered/Not Resolved]

NARRATIVE: CASE EVENT DATE: 20230508
